FAERS Safety Report 9164940 (Version 1)
Quarter: 2013Q1

REPORT INFORMATION
  Report Type: Spontaneous
  Country: US (occurrence: US)
  Receive Date: 20130315
  Receipt Date: 20130315
  Transmission Date: 20140127
  Serious: Yes (Hospitalization, Other)
  Sender: FDA-Public Use
  Company Number: US-JNJFOC-20130302237

PATIENT
  Sex: Male

DRUGS (6)
  1. REMICADE [Suspect]
     Indication: ANKYLOSING SPONDYLITIS
     Route: 042
  2. REMICADE [Suspect]
     Indication: COLITIS
     Route: 042
  3. REMICADE [Suspect]
     Indication: CROHN^S DISEASE
     Route: 042
  4. TRAMADOL/APAP [Concomitant]
     Indication: PAIN
     Dosage: TAKEN AS NEEDED
     Route: 048
  5. FOLIC ACID [Concomitant]
     Indication: ROUTINE HEALTH MAINTENANCE
     Route: 065
  6. NIASPAN [Concomitant]
     Route: 065
     Dates: start: 201111

REACTIONS (10)
  - Hypertension [Unknown]
  - Loss of consciousness [Recovered/Resolved]
  - Fall [Recovered/Resolved]
  - Dehydration [Recovered/Resolved]
  - Compression fracture [Unknown]
  - Ankylosing spondylitis [Not Recovered/Not Resolved]
  - Groin infection [Not Recovered/Not Resolved]
  - Infection [Not Recovered/Not Resolved]
  - Furuncle [Not Recovered/Not Resolved]
  - Rhinitis [Recovered/Resolved]
